FAERS Safety Report 20121547 (Version 1)
Quarter: 2021Q4

REPORT INFORMATION
  Report Type: Spontaneous
  Country: US (occurrence: US)
  Receive Date: 20211128
  Receipt Date: 20211128
  Transmission Date: 20220303
  Serious: No
  Sender: FDA-Public Use
  Company Number: US-SA-SAC20211123001280

PATIENT
  Sex: Female

DRUGS (12)
  1. DUPIXENT [Suspect]
     Active Substance: DUPILUMAB
     Indication: Dermatitis atopic
     Dosage: 600 MG, 1X
     Route: 058
  2. DUPIXENT [Suspect]
     Active Substance: DUPILUMAB
     Dosage: 300 MG, QOW
     Route: 058
  3. CALCIUM [Concomitant]
     Active Substance: CALCIUM
     Dosage: TAB 500-125M
  4. DOXEPIN HCL [Concomitant]
     Active Substance: DOXEPIN HYDROCHLORIDE
  5. EUCRISA [Concomitant]
     Active Substance: CRISABOROLE
  6. HYDROXYZINE [Concomitant]
     Active Substance: HYDROXYZINE HYDROCHLORIDE
  7. POTASSIUM [Concomitant]
     Active Substance: POTASSIUM
  8. OMEPRAZOLE [Concomitant]
     Active Substance: OMEPRAZOLE
  9. TACROLIMUS [Concomitant]
     Active Substance: TACROLIMUS
  10. CYANOCOBALAMIN [Concomitant]
     Active Substance: CYANOCOBALAMIN
  11. WELLBUTRIN [Concomitant]
     Active Substance: BUPROPION HYDROCHLORIDE
     Dosage: 200 MG
  12. CHLORAMPHENICOL\HYDROCORTISONE ACETATE [Concomitant]
     Active Substance: CHLORAMPHENICOL\HYDROCORTISONE ACETATE
     Dosage: 100MG/60

REACTIONS (1)
  - Product dose omission issue [Unknown]
